FAERS Safety Report 5758673-7 (Version None)
Quarter: 2008Q2

REPORT INFORMATION
  Report Type: 
  Country: None (occurrence: None)
  Receive Date: 20080603
  Receipt Date: 20080603
  Transmission Date: 20081010
  Serious: Yes (Life-Threatening, Hospitalization)
  Sender: FDA-Public Use
  Company Number: None

PATIENT
  Age: 60 Year
  Sex: Male
  Weight: 95.2 kg

DRUGS (1)
  1. LISINOPRIL [Suspect]
     Indication: HYPERTENSION
     Dosage: 5MG DAILY ORAL
     Route: 048

REACTIONS (10)
  - ANGIOEDEMA [None]
  - APHASIA [None]
  - CHEST PAIN [None]
  - HEART RATE INCREASED [None]
  - PALATAL OEDEMA [None]
  - RESPIRATORY DISTRESS [None]
  - SWOLLEN TONGUE [None]
  - SYNCOPE [None]
  - TACHYPNOEA [None]
  - VISUAL DISTURBANCE [None]
